FAERS Safety Report 9210516 (Version 3)
Quarter: 2013Q2

REPORT INFORMATION
  Report Type: Spontaneous
  Country: US (occurrence: US)
  Receive Date: 20130404
  Receipt Date: 20130607
  Transmission Date: 20140414
  Serious: No
  Sender: FDA-Public Use
  Company Number: US-PFIZER INC-2013103345

PATIENT
  Age: 72 Year
  Sex: Female
  Weight: 69.39 kg

DRUGS (2)
  1. DOXYCYCLINE HYCLATE [Suspect]
     Indication: ONYCHOMYCOSIS
     Dosage: 100 MG, 3X/DAY
  2. CLOBETASOL PROPIONATE [Suspect]
     Dosage: UNK

REACTIONS (8)
  - Skin depigmentation [Unknown]
  - Local swelling [Unknown]
  - Skin disorder [Unknown]
  - Rash [Not Recovered/Not Resolved]
  - Bacterial infection [Unknown]
  - Eczema [Unknown]
  - Ulcer [Not Recovered/Not Resolved]
  - Off label use [Unknown]
